FAERS Safety Report 10596406 (Version 1)
Quarter: 2014Q4

REPORT INFORMATION
  Report Type: Spontaneous
  Country: US (occurrence: US)
  Receive Date: 20141120
  Receipt Date: 20141120
  Transmission Date: 20150529
  Serious: Yes (Other)
  Sender: FDA-Public Use
  Company Number: US-BAYER-2014-170451

PATIENT
  Age: 72 Year
  Sex: Male

DRUGS (2)
  1. GADAVIST [Suspect]
     Active Substance: GADOBUTROL
     Indication: NUCLEAR MAGNETIC RESONANCE IMAGING
  2. GADAVIST [Suspect]
     Active Substance: GADOBUTROL
     Indication: NUCLEAR MAGNETIC RESONANCE IMAGING BRAIN
     Dosage: 15 ML, UNK
     Dates: start: 20141114, end: 20141114

REACTIONS (6)
  - Eye pruritus [Not Recovered/Not Resolved]
  - Ocular hyperaemia [None]
  - Cough [Recovered/Resolved]
  - Eye irritation [Not Recovered/Not Resolved]
  - Nausea [Recovered/Resolved]
  - Dyskinesia [None]

NARRATIVE: CASE EVENT DATE: 20141114
